FAERS Safety Report 5905301-3 (Version None)
Quarter: 2008Q4

REPORT INFORMATION
  Report Type: 
  Country: None (occurrence: None)
  Receive Date: 20081001
  Receipt Date: 20080923
  Transmission Date: 20090506
  Serious: Yes (Other)
  Sender: FDA-Public Use
  Company Number: US-AMGEN-STX309494

PATIENT
  Sex: Female

DRUGS (1)
  1. ENBREL [Suspect]
     Indication: PSORIATIC ARTHROPATHY
     Route: 058

REACTIONS (8)
  - COCCYDYNIA [None]
  - CONCUSSION [None]
  - FALL [None]
  - LOSS OF CONSCIOUSNESS [None]
  - POST CONCUSSION SYNDROME [None]
  - POST HERPETIC NEURALGIA [None]
  - RASH [None]
  - WOUND INFECTION [None]
